FAERS Safety Report 24983198 (Version 1)
Quarter: 2025Q1

REPORT INFORMATION
  Report Type: Spontaneous
  Country: FR (occurrence: FR)
  Receive Date: 20250218
  Receipt Date: 20250218
  Transmission Date: 20250408
  Serious: Yes (Other)
  Sender: ASCEND THERAPEUTICS US, LLC
  Company Number: FR-Ascend Therapeutics US, LLC-2170445

PATIENT
  Age: 48 Year
  Sex: Male

DRUGS (5)
  1. ANDROGEL [Suspect]
     Active Substance: TESTOSTERONE
     Indication: Product used for unknown indication
  2. TESTOSTERONE [Suspect]
     Active Substance: TESTOSTERONE
  3. PREGNENOLONE [Suspect]
     Active Substance: PREGNENOLONE
  4. PRASTERONE [Suspect]
     Active Substance: PRASTERONE
  5. LEVOTHYROXINE SODIUM\LIOTHYRONINE SODIUM [Suspect]
     Active Substance: LEVOTHYROXINE SODIUM\LIOTHYRONINE SODIUM

REACTIONS (34)
  - Hypothyroidism [Unknown]
  - Libido decreased [Not Recovered/Not Resolved]
  - Haemoglobin increased [Recovering/Resolving]
  - Haematocrit increased [Recovering/Resolving]
  - Alopecia [Unknown]
  - Aspartate aminotransferase increased [Unknown]
  - Alanine aminotransferase increased [Unknown]
  - Feeling cold [Recovered/Resolved]
  - Vitamin E decreased [Not Recovered/Not Resolved]
  - Insulin-like growth factor abnormal [Not Recovered/Not Resolved]
  - Body fat disorder [Unknown]
  - Low density lipoprotein decreased [Unknown]
  - Muscle contractions involuntary [Recovered/Resolved]
  - Fatigue [Recovered/Resolved]
  - Serum ferritin increased [Unknown]
  - Blood potassium decreased [Unknown]
  - Vitamin A decreased [Unknown]
  - Insulin-like growth factor decreased [Unknown]
  - Oestradiol decreased [Unknown]
  - Blood testosterone increased [Unknown]
  - Progesterone decreased [Unknown]
  - Abdominal fat apron [Unknown]
  - Tendonitis [Recovering/Resolving]
  - Pigmentation disorder [Unknown]
  - Conjunctivitis [Unknown]
  - Oestradiol increased [Not Recovered/Not Resolved]
  - Benign prostatic hyperplasia [Unknown]
  - Zinc deficiency [Unknown]
  - Impaired healing [Unknown]
  - Arthralgia [Recovering/Resolving]
  - Sleep disorder [Unknown]
  - Chest discomfort [Unknown]
  - Cortisol decreased [Unknown]
  - Growth hormone deficiency [Unknown]
